FAERS Safety Report 4525042-7 (Version None)
Quarter: 2004Q4

REPORT INFORMATION
  Report Type: 
  Country: None (occurrence: None)
  Receive Date: 20041117
  Receipt Date: 20031020
  Transmission Date: 20050328
  Serious: Yes (Other)
  Sender: FDA-Public Use
  Company Number: C2003-2845.01

PATIENT
  Age: 54 Year
  Sex: Male

DRUGS (4)
  1. CLOZAPINE [Suspect]
     Indication: DRUG RESISTANCE
     Dosage: 600MG, HS, ORAL
     Route: 048
     Dates: end: 20031013
  2. CLOZAPINE [Suspect]
     Indication: SCHIZOPHRENIA, PARANOID TYPE
     Dosage: 600MG, HS, ORAL
     Route: 048
     Dates: end: 20031013
  3. CLOZAPINE [Suspect]
     Indication: DRUG RESISTANCE
     Dosage: 600MG, HS, ORAL
     Route: 048
     Dates: start: 20031022
  4. CLOZAPINE [Suspect]
     Indication: SCHIZOPHRENIA, PARANOID TYPE
     Dosage: 600MG, HS, ORAL
     Route: 048
     Dates: start: 20031022

REACTIONS (1)
  - LEUKOPENIA [None]
